FAERS Safety Report 9580763 (Version 1)
Quarter: 2013Q4

REPORT INFORMATION
  Report Type: Spontaneous
  Country: US (occurrence: None)
  Receive Date: 20131001
  Receipt Date: 20131001
  Transmission Date: 20140711
  Serious: No
  Sender: FDA-Public Use
  Company Number: None

PATIENT
  Age: 68 Year
  Sex: Female
  Weight: 90 kg

DRUGS (1)
  1. METOPROLOL ER [Suspect]
     Indication: HYPERTENSION
     Dosage: 1 TABLET
     Route: 048

REACTIONS (2)
  - Dyspnoea [None]
  - Anxiety [None]
